FAERS Safety Report 7436977-X (Version None)
Quarter: 2011Q2

REPORT INFORMATION
  Report Type: 
  Country: None (occurrence: None)
  Receive Date: 20110418
  Receipt Date: 20110401
  Transmission Date: 20111010
  Serious: Yes (Hospitalization)
  Sender: FDA-Public Use
  Company Number: 2011001536

PATIENT
  Age: 61 Year
  Sex: Female
  Weight: 54.8852 kg

DRUGS (4)
  1. ALIMTA [Concomitant]
  2. LOVENOX [Concomitant]
  3. TARCEVA [Suspect]
     Indication: NON-SMALL CELL LUNG CANCER
     Dosage: (150 MG, QD), ORAL
     Route: 048
     Dates: start: 20091101, end: 20110306
  4. CISPLATIN [Concomitant]

REACTIONS (2)
  - THROMBOSIS [None]
  - PLEURAL EFFUSION [None]
